FAERS Safety Report 22949744 (Version 10)
Quarter: 2023Q4

REPORT INFORMATION
  Report Type: Report from Study
  Country: AR (occurrence: AR)
  Receive Date: 20230915
  Receipt Date: 20231128
  Transmission Date: 20240109
  Serious: Yes (Hospitalization)
  Sender: FDA-Public Use
  Company Number: AR-PFIZER INC-202300292582

PATIENT
  Age: 56 Year
  Sex: Male
  Weight: 72.5 kg

DRUGS (3)
  1. ELRANATAMAB [Suspect]
     Active Substance: ELRANATAMAB
     Indication: Plasma cell myeloma
     Dosage: 12 MG (C1D1), WEEKLY
     Route: 058
     Dates: start: 20230808, end: 20230808
  2. ELRANATAMAB [Suspect]
     Active Substance: ELRANATAMAB
     Dosage: 32 MG (C1D4), WEEKLY
     Route: 058
     Dates: start: 20230811, end: 20230811
  3. ELRANATAMAB [Suspect]
     Active Substance: ELRANATAMAB
     Dosage: 76 MG (C1D8), WEEKLY
     Route: 058
     Dates: start: 20230817, end: 20230817

REACTIONS (1)
  - Phlebitis [Recovered/Resolved]

NARRATIVE: CASE EVENT DATE: 20230902
